FAERS Safety Report 16139644 (Version 1)
Quarter: 2019Q2

REPORT INFORMATION
  Report Type: Spontaneous
  Country: US (occurrence: US)
  Receive Date: 20190329
  Receipt Date: 20190329
  Transmission Date: 20190711
  Serious: Yes (Other)
  Sender: FDA-Public Use
  Company Number: None

PATIENT
  Age: 48 Year
  Sex: Female
  Weight: 69.75 kg

DRUGS (8)
  1. FLUTICASONE PROPIONATE/SALMETEROL DISKUS [Concomitant]
     Active Substance: FLUTICASONE PROPIONATE\SALMETEROL XINAFOATE
     Indication: ASTHMA
     Dosage: ?          OTHER STRENGTH:250/50;?
     Route: 055
     Dates: start: 20190107
  2. CRANBERRY 500MG [Concomitant]
  3. FOLIC ACID 400MCG [Concomitant]
  4. 250-ADVAIR [Concomitant]
  5. MONTELUKAST SODIUM 10MG [Concomitant]
     Active Substance: MONTELUKAST SODIUM
  6. ACETAMINOPHEN 500MG [Concomitant]
     Active Substance: ACETAMINOPHEN
  7. IBUPROFEN 600MG [Concomitant]
     Active Substance: IBUPROFEN
  8. B12 1000MCG [Concomitant]

REACTIONS (2)
  - Hypertension [None]
  - Product substitution issue [None]

NARRATIVE: CASE EVENT DATE: 20190329
